FAERS Safety Report 7106380-0 (Version None)
Quarter: 2010Q4

REPORT INFORMATION
  Report Type: 
  Country: None (occurrence: None)
  Receive Date: 20101116
  Receipt Date: 20100623
  Transmission Date: 20110411
  Serious: No
  Sender: FDA-Public Use
  Company Number: US-PFIZER INC-2010072936

PATIENT
  Age: 81 Year
  Sex: Male

DRUGS (2)
  1. TOVIAZ [Suspect]
     Indication: POLYURIA
     Dosage: 4 MG, FOR ONE WEEK
  2. TOVIAZ [Suspect]
     Indication: NOCTURIA

REACTIONS (2)
  - DIARRHOEA [None]
  - DRUG INEFFECTIVE [None]
